FAERS Safety Report 6276097-3 (Version None)
Quarter: 2009Q3

REPORT INFORMATION
  Report Type: 
  Country: None (occurrence: None)
  Receive Date: 20090722
  Receipt Date: 20070905
  Transmission Date: 20100115
  Serious: Yes (Death, Hospitalization)
  Sender: FDA-Public Use
  Company Number: US-ASTRAZENECA-2006UW11151

PATIENT
  Age: 17539 Day
  Sex: Female
  Weight: 115.2 kg

DRUGS (45)
  1. SEROQUEL [Suspect]
     Indication: DEPRESSION
     Dosage: 25 MG TO 900 MG
     Route: 048
     Dates: start: 20010213, end: 20070902
  2. SEROQUEL [Suspect]
     Indication: SCHIZOPHRENIA
     Dosage: 25 MG TO 900 MG
     Route: 048
     Dates: start: 20010213, end: 20070902
  3. SEROQUEL [Suspect]
     Indication: BIPOLAR DISORDER
     Dosage: 25 MG TO 900 MG
     Route: 048
     Dates: start: 20010213, end: 20070902
  4. SEROQUEL [Suspect]
     Indication: HALLUCINATION, AUDITORY
     Dosage: 25 MG TO 900 MG
     Route: 048
     Dates: start: 20010213, end: 20070902
  5. SEROQUEL [Suspect]
     Route: 048
  6. SEROQUEL [Suspect]
     Route: 048
  7. SEROQUEL [Suspect]
     Route: 048
  8. SEROQUEL [Suspect]
     Route: 048
  9. PAXIL [Concomitant]
     Dosage: 20 MG TO 30 MG
     Route: 065
     Dates: start: 20010101, end: 20020101
  10. AMBIEN [Concomitant]
     Indication: SLEEP DISORDER
     Dosage: 5 - 10 MG
     Route: 048
  11. TRAZODONE [Concomitant]
     Dosage: 50 - 100 MG
     Route: 048
  12. DARVOCET [Concomitant]
     Indication: PAIN
     Route: 048
  13. HYDROCHLOROTHIAZIDE [Concomitant]
     Indication: HYPERTENSION
     Dosage: 12.5 - 25 MG
     Route: 048
  14. ZOCOR [Concomitant]
     Dosage: 20 - 80 MG
     Route: 048
  15. MICARDIS [Concomitant]
     Dosage: 5 - 20 MG
     Route: 048
  16. ADVAIR DISKUS 100/50 [Concomitant]
     Dosage: 250/50 MCG/DOSE
     Route: 065
  17. ALBUTEROL [Concomitant]
     Route: 065
  18. ATENOLOL [Concomitant]
     Indication: CORONARY ARTERY DISEASE
     Dosage: 25 - 50 MG
     Route: 048
  19. DILANTIN [Concomitant]
     Indication: CONVULSION
     Dosage: 100 - 400 MG
     Route: 048
  20. AVANDIA [Concomitant]
     Dosage: 4 - 50 MG
     Route: 048
  21. GABAPENTIN [Concomitant]
     Dosage: 300 - 400 MG
     Route: 048
  22. IRBESARTAN [Concomitant]
     Route: 048
  23. KLONOPIN [Concomitant]
     Route: 048
  24. LAMICTAL [Concomitant]
     Dosage: 25 -100 MG
     Route: 048
  25. PROMETHAZINE [Concomitant]
     Indication: NAUSEA
     Route: 048
  26. ASPIRIN [Concomitant]
     Dosage: 81 - 325 MG
     Route: 048
  27. OXYCODONE [Concomitant]
     Route: 048
  28. ALPRAZOLAM [Concomitant]
     Dosage: 0.25 - 0.5 MG
     Route: 048
  29. BUSPIRONE HCL [Concomitant]
     Dosage: 5 - 10 MG
     Route: 048
  30. TORSEMIDE [Concomitant]
     Route: 048
  31. VALSARTAN [Concomitant]
     Route: 048
  32. SUMATRIPTAN SUCCINATE [Concomitant]
     Dosage: 06 - 50 MG
     Route: 048
  33. MEPERIDINE HCL [Concomitant]
     Route: 048
  34. ELAVIL [Concomitant]
     Dosage: 25 - 50 MG
     Route: 048
  35. METHADONE HCL [Concomitant]
     Route: 065
  36. MAXALT [Concomitant]
     Route: 048
  37. MEDROL [Concomitant]
     Dosage: 04 - 135 MG
     Route: 065
  38. GLUCOPHAGE [Concomitant]
     Dosage: 500 - 1000 MG
     Route: 048
  39. LISINOPRIL [Concomitant]
     Route: 048
  40. GLIPIZIDE [Concomitant]
     Dosage: 05 - 10 MG
     Route: 048
  41. ACTOS [Concomitant]
     Dosage: 30 - 45 MG
     Route: 048
  42. NAPROXEN [Concomitant]
     Route: 048
  43. FENOFIBRATE [Concomitant]
     Route: 065
  44. NOVOLIN [Concomitant]
     Route: 065
  45. TRAVATAN [Concomitant]
     Route: 065

REACTIONS (9)
  - ANGINA PECTORIS [None]
  - BLOOD CHOLESTEROL INCREASED [None]
  - CARDIO-RESPIRATORY ARREST [None]
  - CEREBROVASCULAR ACCIDENT [None]
  - CHEST PAIN [None]
  - CORONARY ARTERY DISEASE [None]
  - DEATH [None]
  - DIABETES MELLITUS [None]
  - HYPERTENSION [None]
